FAERS Safety Report 5489496-4 (Version None)
Quarter: 2007Q4

REPORT INFORMATION
  Report Type: 
  Country: None (occurrence: None)
  Receive Date: 20071016
  Receipt Date: 20071016
  Transmission Date: 20080405
  Serious: Yes (Other)
  Sender: FDA-Public Use
  Company Number: None

PATIENT
  Age: 30 Year
  Sex: Male
  Weight: 86.1834 kg

DRUGS (2)
  1. EFFEXOR XR [Suspect]
     Indication: ANXIETY
     Dosage: 1 PER DAY EVERYDAY PO
     Route: 048
     Dates: start: 20060401, end: 20070907
  2. EFFEXOR XR [Suspect]
     Indication: DEPRESSION
     Dosage: 1 PER DAY EVERYDAY PO
     Route: 048
     Dates: start: 20060401, end: 20070907

REACTIONS (6)
  - DRUG DEPENDENCE [None]
  - DRUG WITHDRAWAL SYNDROME [None]
  - HEART RATE IRREGULAR [None]
  - HYPERTENSION [None]
  - NERVOUS SYSTEM DISORDER [None]
  - PARAESTHESIA [None]
